FAERS Safety Report 25178482 (Version 1)
Quarter: 2025Q2

REPORT INFORMATION
  Report Type: Spontaneous
  Country: US (occurrence: None)
  Receive Date: 20250408
  Receipt Date: 20250408
  Transmission Date: 20250716
  Serious: Yes (unspecified)
  Sender: FDA-CTU
  Company Number: None

PATIENT
  Age: 51 Year
  Sex: Female
  Weight: 60.75 kg

DRUGS (2)
  1. AFRIN [Suspect]
     Active Substance: OXYMETAZOLINE HYDROCHLORIDE
     Indication: Multiple allergies
     Dates: start: 20250101, end: 20250408
  2. Hydroxyzine PRN [Concomitant]

REACTIONS (10)
  - Nonspecific reaction [None]
  - Epistaxis [None]
  - Increased viscosity of upper respiratory secretion [None]
  - Headache [None]
  - Anxiety [None]
  - Heart rate increased [None]
  - Insomnia [None]
  - Tremor [None]
  - Rebound effect [None]
  - Wrong technique in product usage process [None]

NARRATIVE: CASE EVENT DATE: 20250408
